FAERS Safety Report 5828097-2 (Version None)
Quarter: 2008Q3

REPORT INFORMATION
  Report Type: 
  Country: None (occurrence: None)
  Receive Date: 20080731
  Receipt Date: 20080722
  Transmission Date: 20090109
  Serious: Yes (Hospitalization)
  Sender: FDA-Public Use
  Company Number: FR-RANBAXY-2008RR-16579

PATIENT

DRUGS (1)
  1. MINOCYCLINE HCL [Suspect]
     Indication: ACNE
     Dosage: UNK

REACTIONS (1)
  - LYMPHOMATOID PAPULOSIS [None]
